FAERS Safety Report 24878557 (Version 1)
Quarter: 2025Q1

REPORT INFORMATION
  Report Type: Spontaneous
  Country: US (occurrence: US)
  Receive Date: 20250123
  Receipt Date: 20250123
  Transmission Date: 20250408
  Serious: Yes (Other)
  Sender: PFIZER
  Company Number: US-PFIZER INC-202500015321

PATIENT
  Age: 49 Year
  Sex: Female

DRUGS (1)
  1. XELJANZ XR [Suspect]
     Active Substance: TOFACITINIB CITRATE
     Dosage: 11MG 1 TABLET DAILY
     Dates: start: 202402

REACTIONS (3)
  - Rheumatoid arthritis [Recovered/Resolved]
  - Pneumonia [Unknown]
  - Dry eye [Unknown]

NARRATIVE: CASE EVENT DATE: 20241101
